FAERS Safety Report 4822878-X (Version None)
Quarter: 2005Q4

REPORT INFORMATION
  Report Type: 
  Country: None (occurrence: None)
  Receive Date: 20051107
  Receipt Date: 20051107
  Transmission Date: 20060501
  Serious: Yes (Other)
  Sender: FDA-Public Use
  Company Number: None

PATIENT
  Age: 45 Year
  Sex: Male
  Weight: 83.9154 kg

DRUGS (3)
  1. LIPITOR [Suspect]
     Indication: DYSLIPIDAEMIA
     Dosage: 5MG  SID PM  PO
     Route: 048
     Dates: start: 20050801, end: 20050831
  2. ZOCOR [Suspect]
     Indication: DYSLIPIDAEMIA
     Dosage: 10 MG SID PM PO
     Route: 048
     Dates: start: 20050914, end: 20051006
  3. SYNTHROID [Concomitant]

REACTIONS (2)
  - PAIN IN EXTREMITY [None]
  - PARAESTHESIA [None]
